FAERS Safety Report 13676637 (Version 2)
Quarter: 2017Q3

REPORT INFORMATION
  Report Type: Spontaneous
  Country: US (occurrence: US)
  Receive Date: 20170622
  Receipt Date: 20170707
  Transmission Date: 20171127
  Serious: No
  Sender: FDA-Public Use
  Company Number: US-PFIZER INC-2017267341

PATIENT
  Sex: Male

DRUGS (1)
  1. XELJANZ XR [Suspect]
     Active Substance: TOFACITINIB CITRATE
     Dosage: 11 MG, UNK

REACTIONS (9)
  - Joint swelling [Unknown]
  - Arthropathy [Unknown]
  - Erythema [Unknown]
  - Oedema [Unknown]
  - Arthralgia [Unknown]
  - Joint warmth [Unknown]
  - Joint crepitation [Unknown]
  - Bone erosion [Unknown]
  - Musculoskeletal stiffness [Unknown]

NARRATIVE: CASE EVENT DATE: 20170421
